FAERS Safety Report 10517822 (Version 1)
Quarter: 2014Q4

REPORT INFORMATION
  Report Type: Spontaneous
  Country: US (occurrence: US)
  Receive Date: 20141015
  Receipt Date: 20141015
  Transmission Date: 20150528
  Serious: Yes (Hospitalization)
  Sender: FDA-Public Use
  Company Number: US-SA-2014SA138437

PATIENT
  Age: 31 Year
  Sex: Female

DRUGS (4)
  1. INSULIN HUMAN ISOPHANE [Suspect]
     Active Substance: INSULIN HUMAN
     Indication: TYPE 1 DIABETES MELLITUS
     Route: 065
  2. INSULIN GLARGINE [Suspect]
     Active Substance: INSULIN GLARGINE
     Indication: DIABETIC KETOACIDOSIS
     Route: 058
  3. POTASSIUM CHLORIDE. [Suspect]
     Active Substance: POTASSIUM CHLORIDE
     Indication: DIABETIC KETOACIDOSIS
     Route: 041
  4. DEXTROSE. [Suspect]
     Active Substance: DEXTROSE
     Indication: DIABETIC KETOACIDOSIS
     Dosage: MULTIPLE AMPULES
     Route: 042

REACTIONS (12)
  - Blood bicarbonate decreased [Recovering/Resolving]
  - Urine ketone body present [Unknown]
  - Drug dose omission [Unknown]
  - Nausea [Unknown]
  - Vomiting [Recovering/Resolving]
  - Abdominal tenderness [Unknown]
  - Metabolic acidosis [Recovering/Resolving]
  - Tachycardia [Unknown]
  - Blood ketone body increased [Unknown]
  - Exposure during pregnancy [Unknown]
  - Diabetic ketoacidosis [Recovering/Resolving]
  - Chest discomfort [Unknown]
